FAERS Safety Report 6111429-8 (Version None)
Quarter: 2009Q1

REPORT INFORMATION
  Report Type: 
  Country: None (occurrence: None)
  Receive Date: 20090311
  Receipt Date: 20090303
  Transmission Date: 20090719
  Serious: Yes (Other)
  Sender: FDA-Public Use
  Company Number: DE-JNJFOC-20090300847

PATIENT
  Age: 60 Year
  Sex: Female

DRUGS (15)
  1. HALDOL [Suspect]
     Route: 048
  2. HALDOL [Suspect]
     Indication: DRUG USE FOR UNKNOWN INDICATION
     Route: 048
  3. ZYPREXA [Suspect]
     Route: 048
  4. ZYPREXA [Suspect]
     Route: 048
  5. ZYPREXA [Suspect]
     Route: 048
  6. ZYPREXA [Suspect]
     Indication: DRUG USE FOR UNKNOWN INDICATION
     Route: 048
  7. DIAZEPAM [Concomitant]
     Route: 048
  8. DIAZEPAM [Concomitant]
     Route: 048
  9. LORAZEPAM [Concomitant]
     Route: 048
  10. ERGENYL [Concomitant]
     Route: 048
  11. ERGENYL [Concomitant]
     Route: 048
  12. ERGENYL [Concomitant]
     Route: 048
  13. SORTIS [Concomitant]
     Route: 048
  14. BELOC MITE [Concomitant]
     Route: 048
  15. CLEXANE [Concomitant]
     Route: 058

REACTIONS (4)
  - BLOOD CREATINE PHOSPHOKINASE INCREASED [None]
  - FALL [None]
  - HAEMATOMA [None]
  - PARKINSONISM [None]
